FAERS Safety Report 6219115-0 (Version None)
Quarter: 2009Q2

REPORT INFORMATION
  Report Type: 
  Country: None (occurrence: None)
  Receive Date: 20090605
  Receipt Date: 20090525
  Transmission Date: 20091009
  Serious: Yes (Other)
  Sender: FDA-Public Use
  Company Number: 2009EN000176

PATIENT
  Age: 75 Year
  Sex: Male

DRUGS (1)
  1. ABELCET [Suspect]
     Indication: DRUG USE FOR UNKNOWN INDICATION

REACTIONS (2)
  - OXYGEN SATURATION DECREASED [None]
  - TACHYCARDIA [None]
